FAERS Safety Report 9539049 (Version 1)
Quarter: 2013Q3

REPORT INFORMATION
  Report Type: Report from Study
  Country: BR (occurrence: BR)
  Receive Date: 20130920
  Receipt Date: 20130920
  Transmission Date: 20140515
  Serious: Yes (Death)
  Sender: FDA-Public Use
  Company Number: PHHY2013BR098554

PATIENT
  Sex: Female

DRUGS (6)
  1. RASILEZ [Suspect]
  2. DIOVAN HCT [Suspect]
     Dosage: 1 DF (80MG VAL, 12.5 MG HCTZ), UNK
  3. DIOVAN HCT [Suspect]
     Dosage: 1 DF (320 MG VALS, 25 MG HCTZ), UNK
  4. DIOVAN AMLO FIX [Suspect]
     Dosage: 1 DF (320 MG VAL, 5 MG AMLO), UNK
  5. DIOVAN [Suspect]
     Dosage: 80 MG, UNK
  6. DIOVAN [Suspect]
     Dosage: 320 MG, UNK

REACTIONS (1)
  - Death [Fatal]
